FAERS Safety Report 7322585-8 (Version None)
Quarter: 2011Q1

REPORT INFORMATION
  Report Type: 
  Country: None (occurrence: None)
  Receive Date: 20110301
  Receipt Date: 20110228
  Transmission Date: 20110831
  Serious: Yes (Hospitalization)
  Sender: FDA-Public Use
  Company Number: US-PFIZER INC-2011043383

PATIENT
  Age: 46 Year
  Sex: Female

DRUGS (1)
  1. CELEBREX [Suspect]
     Dosage: 100MG, UNK
     Route: 048

REACTIONS (1)
  - BLOOD POTASSIUM DECREASED [None]
